FAERS Safety Report 21214025 (Version 1)
Quarter: 2022Q3

REPORT INFORMATION
  Report Type: Spontaneous
  Country: US (occurrence: US)
  Receive Date: 20220816
  Receipt Date: 20220816
  Transmission Date: 20221026
  Serious: Yes (Other)
  Sender: FDA-Public Use
  Company Number: US-MLMSERVICE-20201221-2641312-1

PATIENT
  Age: 23 Year
  Sex: Female

DRUGS (6)
  1. CYCLOPHOSPHAMIDE [Suspect]
     Active Substance: CYCLOPHOSPHAMIDE
     Indication: Plasmablastic lymphoma
     Dosage: 2 CYCLES
     Route: 065
  2. PREDNISONE [Suspect]
     Active Substance: PREDNISONE
     Indication: Plasmablastic lymphoma
     Dosage: 2 CYCLES
     Route: 065
  3. VINCRISTINE SULFATE [Suspect]
     Active Substance: VINCRISTINE SULFATE
     Indication: Plasmablastic lymphoma
     Dosage: 2 CYCLES
     Route: 065
  4. DOXORUBICIN [Suspect]
     Active Substance: DOXORUBICIN
     Indication: Plasmablastic lymphoma
     Dosage: 2 CYCLES
     Route: 065
  5. ETOPOSIDE [Suspect]
     Active Substance: ETOPOSIDE
     Indication: Plasmablastic lymphoma
     Dosage: 2 CYCLES
     Route: 065
  6. OCTREOTIDE [Concomitant]
     Active Substance: OCTREOTIDE
     Indication: Gorham^s disease
     Dosage: 2 CYCLES
     Route: 065

REACTIONS (2)
  - Febrile neutropenia [Unknown]
  - Small intestinal obstruction [Unknown]
